FAERS Safety Report 12264203 (Version 1)
Quarter: 2016Q2

REPORT INFORMATION
  Report Type: Spontaneous
  Country: US (occurrence: US)
  Receive Date: 20160413
  Receipt Date: 20160413
  Transmission Date: 20160815
  Serious: No
  Sender: FDA-Public Use
  Company Number: US-JNJFOC-20160300937

PATIENT
  Age: 75 Year
  Sex: Female
  Weight: 51.26 kg

DRUGS (2)
  1. MENS ROGAINE EXTRA STRENGTH [Suspect]
     Active Substance: MINOXIDIL
     Route: 061
  2. MENS ROGAINE EXTRA STRENGTH [Suspect]
     Active Substance: MINOXIDIL
     Indication: ALOPECIA
     Dosage: 1 CAPFUL,1 TO 2 TIMES PER DAY WHEN SHE REMEMBERED.
     Route: 061

REACTIONS (2)
  - Drug prescribing error [Unknown]
  - Off label use [Unknown]
